FAERS Safety Report 5411134-7 (Version None)
Quarter: 2007Q3

REPORT INFORMATION
  Report Type: 
  Country: None (occurrence: None)
  Receive Date: 20070810
  Receipt Date: 20070801
  Transmission Date: 20080115
  Serious: Yes (Other)
  Sender: FDA-Public Use
  Company Number: US-PURDUE-USA_2007_0028630

PATIENT
  Age: 51 Year
  Sex: Female

DRUGS (4)
  1. OXYCONTIN [Suspect]
     Indication: DRUG USE FOR UNKNOWN INDICATION
     Dosage: 10 MG, DAILY
     Route: 048
     Dates: start: 20070714, end: 20070714
  2. FLUOROURACIL [Concomitant]
     Indication: NEOPLASM MALIGNANT
     Dosage: UNK, UNK
  3. IRINOTECAN HCL [Concomitant]
     Indication: NEOPLASM MALIGNANT
     Dosage: UNK, UNK
  4. PERCOCET [Concomitant]
     Indication: DRUG USE FOR UNKNOWN INDICATION
     Dosage: UNK, UNK

REACTIONS (5)
  - FACIAL PALSY [None]
  - HALLUCINATION [None]
  - JOINT LOCK [None]
  - NAUSEA [None]
  - TRISMUS [None]
